FAERS Safety Report 8077168-1 (Version None)
Quarter: 2012Q1

REPORT INFORMATION
  Report Type: 
  Country: None (occurrence: None)
  Receive Date: 20120127
  Receipt Date: 20120123
  Transmission Date: 20120608
  Serious: Yes (Death, Other)
  Sender: FDA-Public Use
  Company Number: PHEH2012US001966

PATIENT
  Sex: Male

DRUGS (1)
  1. VALTURNA [Suspect]
     Dosage: UNK UKN, UNK

REACTIONS (2)
  - DEATH [None]
  - NEOPLASM MALIGNANT [None]
